FAERS Safety Report 20650815 (Version 2)
Quarter: 2022Q2

REPORT INFORMATION
  Report Type: Report from Study
  Country: FR (occurrence: None)
  Receive Date: 20220329
  Receipt Date: 20220404
  Transmission Date: 20220721
  Serious: Yes (Hospitalization)
  Sender: FDA-Public Use
  Company Number: FR-Eisai Medical Research-EC-2022-111426

PATIENT
  Age: 42 Year
  Sex: Male
  Weight: 64 kg

DRUGS (9)
  1. LENVATINIB [Suspect]
     Active Substance: LENVATINIB
     Indication: Gastrointestinal stromal tumour
     Dosage: PLACEBO
     Route: 048
     Dates: start: 20220105, end: 20220109
  2. LENVATINIB [Suspect]
     Active Substance: LENVATINIB
     Dosage: ACTIVE
     Route: 048
     Dates: start: 20220119, end: 20220224
  3. ACUPAN [Concomitant]
     Active Substance: NEFOPAM HYDROCHLORIDE
     Indication: Pain
     Route: 048
  4. LOVENOX [Concomitant]
     Active Substance: ENOXAPARIN SODIUM
     Indication: Thrombosis
     Route: 058
  5. FENTANYL [Concomitant]
     Active Substance: FENTANYL
     Indication: Pain
  6. OXYCODONE HYDROCHLORIDE [Concomitant]
     Active Substance: OXYCODONE HYDROCHLORIDE
     Indication: Pain
     Route: 048
  7. ZOPICLONE [Concomitant]
     Active Substance: ZOPICLONE
  8. METHYLPREDNISOLONE [Concomitant]
     Active Substance: METHYLPREDNISOLONE
  9. PANTOPRAZOLE [Concomitant]
     Active Substance: PANTOPRAZOLE

REACTIONS (1)
  - Anaemia [Not Recovered/Not Resolved]

NARRATIVE: CASE EVENT DATE: 20220223
